FAERS Safety Report 19382227 (Version 1)
Quarter: 2021Q2

REPORT INFORMATION
  Report Type: Spontaneous
  Country: CN (occurrence: CN)
  Receive Date: 20210607
  Receipt Date: 20210607
  Transmission Date: 20210717
  Serious: Yes (Hospitalization, Disabling, Other)
  Sender: FDA-Public Use
  Company Number: CN-BAYER-2021-151167

PATIENT
  Age: 68 Year
  Sex: Male
  Weight: 67 kg

DRUGS (2)
  1. STIVARGA [Suspect]
     Active Substance: REGORAFENIB
     Indication: HEPATIC CANCER
     Dosage: UNK
  2. STIVARGA [Suspect]
     Active Substance: REGORAFENIB
     Indication: HEPATIC CANCER
     Dosage: 120 MG, QD
     Route: 048
     Dates: start: 20210401, end: 20210519

REACTIONS (4)
  - Hepatic function abnormal [Recovering/Resolving]
  - Total bile acids increased [Recovering/Resolving]
  - Blood bilirubin increased [Recovering/Resolving]
  - Off label use [None]

NARRATIVE: CASE EVENT DATE: 20210401
